FAERS Safety Report 6249812-2 (Version None)
Quarter: 2009Q2

REPORT INFORMATION
  Report Type: 
  Country: None (occurrence: None)
  Receive Date: 20090629
  Receipt Date: 20090623
  Transmission Date: 20091009
  Serious: Yes (Disabling)
  Sender: FDA-Public Use
  Company Number: PHEH2009US06334

PATIENT
  Sex: Male

DRUGS (6)
  1. AFINITOR [Suspect]
     Indication: RENAL CELL CARCINOMA
     Dosage: 10 MG, QD
     Route: 048
     Dates: start: 20090421, end: 20090601
  2. RADIATION [Suspect]
  3. FLOMAX [Concomitant]
     Indication: BENIGN PROSTATIC HYPERPLASIA
     Dosage: 0.4 MG, QD
     Route: 048
  4. LESCOL XL [Concomitant]
     Indication: HYPERLIPIDAEMIA
     Dosage: 80 MG, QD
     Route: 048
  5. OXYCONTIN [Concomitant]
     Indication: BONE PAIN
     Dosage: 20 MG, BID
     Route: 048
     Dates: start: 20090317
  6. PERCOCET [Concomitant]
     Indication: BONE PAIN
     Dosage: 7.5/325 MG BID TO TID
     Route: 048

REACTIONS (6)
  - COUGH [None]
  - DEHYDRATION [None]
  - FATIGUE [None]
  - HYPOPHAGIA [None]
  - RADIATION OESOPHAGITIS [None]
  - WEIGHT DECREASED [None]
